FAERS Safety Report 8511586-X (Version None)
Quarter: 2012Q3

REPORT INFORMATION
  Report Type: 
  Country: None (occurrence: None)
  Receive Date: 20120716
  Receipt Date: 20120710
  Transmission Date: 20120928
  Serious: Yes (Other)
  Sender: FDA-Public Use
  Company Number: PHEH2012US007413

PATIENT
  Sex: Female

DRUGS (14)
  1. STEROIDS NOS [Suspect]
  2. PREVACID [Concomitant]
  3. HYDROCODONE [Concomitant]
  4. TOPROL-XL [Concomitant]
  5. DARVOCET-N 50 [Concomitant]
  6. POTASSIUM GLUCONATE TAB [Concomitant]
  7. SYNTHROID [Concomitant]
  8. EFFEXOR [Concomitant]
  9. RECLAST [Suspect]
     Dosage: 5 MG, UNK
     Route: 042
     Dates: start: 20101019
  10. VITAMIN D [Concomitant]
  11. RECLAST [Suspect]
     Dosage: 5 MG, UNK
     Route: 042
     Dates: start: 20100719
  12. CALCIUM [Concomitant]
  13. PREDNISONE [Concomitant]
  14. TIZANIDINE HYDROCHLORIDE [Concomitant]

REACTIONS (68)
  - PAIN IN JAW [None]
  - EYELID OEDEMA [None]
  - URINARY TRACT INFECTION [None]
  - SIALOADENITIS [None]
  - HYPERTENSION [None]
  - SACROILIITIS [None]
  - HEADACHE [None]
  - OSTEONECROSIS [None]
  - PYREXIA [None]
  - SINUS CONGESTION [None]
  - DIVERTICULUM INTESTINAL [None]
  - FIBROMYALGIA [None]
  - ONYCHOMYCOSIS [None]
  - VOMITING [None]
  - COUGH [None]
  - SKELETAL INJURY [None]
  - INFLUENZA LIKE ILLNESS [None]
  - EAR HAEMORRHAGE [None]
  - HYPERLIPIDAEMIA [None]
  - MYOCARDIAL INFARCTION [None]
  - INJURY [None]
  - DISCOMFORT [None]
  - TREMOR [None]
  - EAR INFECTION [None]
  - CELLULITIS [None]
  - ATELECTASIS [None]
  - SYNCOPE [None]
  - PLEURAL EFFUSION [None]
  - ANHEDONIA [None]
  - MYALGIA [None]
  - NAUSEA [None]
  - CONTUSION [None]
  - LYMPHADENOPATHY [None]
  - CARDIOMEGALY [None]
  - GASTROOESOPHAGEAL REFLUX DISEASE [None]
  - INTERVERTEBRAL DISC DEGENERATION [None]
  - VISION BLURRED [None]
  - OSTEOPOROSIS POSTMENOPAUSAL [None]
  - EMOTIONAL DISTRESS [None]
  - FATIGUE [None]
  - MUSCLE RUPTURE [None]
  - ACUTE SINUSITIS [None]
  - HEPATIC STEATOSIS [None]
  - HAEMOPTYSIS [None]
  - FALL [None]
  - RECTAL HAEMORRHAGE [None]
  - CONVULSION [None]
  - HYPOTHYROIDISM [None]
  - OSTEITIS DEFORMANS [None]
  - ARTHRALGIA [None]
  - INSOMNIA [None]
  - ABDOMINAL PAIN [None]
  - INAPPROPRIATE SCHEDULE OF DRUG ADMINISTRATION [None]
  - BONE PAIN [None]
  - GASTRITIS [None]
  - COSTOCHONDRITIS [None]
  - CARDIAC FAILURE CONGESTIVE [None]
  - CUSHING'S SYNDROME [None]
  - JOINT EFFUSION [None]
  - DIABETES MELLITUS [None]
  - AORTIC ARTERIOSCLEROSIS [None]
  - MUSCLE SPASMS [None]
  - DYSURIA [None]
  - FUNGAL INFECTION [None]
  - JOINT SWELLING [None]
  - HEPATOMEGALY [None]
  - CARDIAC VALVE DISEASE [None]
  - PAROTITIS [None]
